FAERS Safety Report 13611821 (Version 4)
Quarter: 2017Q2

REPORT INFORMATION
  Report Type: Spontaneous
  Country: US (occurrence: US)
  Receive Date: 20170605
  Receipt Date: 20170628
  Transmission Date: 20170830
  Serious: Yes (Other)
  Sender: FDA-Public Use
  Company Number: US-LUNDBECK-DKLU2031876

PATIENT
  Age: 46 Year
  Sex: Male

DRUGS (6)
  1. NORTHERA [Suspect]
     Active Substance: DROXIDOPA
     Dosage: TITRATION SCHEDULE B (TITRATING 48 HR. SLOWLY)
     Route: 048
     Dates: start: 20170614
  2. NORTHERA [Suspect]
     Active Substance: DROXIDOPA
     Dosage: TITRATION SCHEDULE B
     Route: 048
     Dates: start: 20170522
  3. NORTHERA [Suspect]
     Active Substance: DROXIDOPA
     Dosage: SCHEDULE B AND TITRATING
     Route: 048
     Dates: start: 20170519
  4. NORTHERA [Suspect]
     Active Substance: DROXIDOPA
     Route: 048
  5. NORTHERA [Suspect]
     Active Substance: DROXIDOPA
     Indication: AUTONOMIC NEUROPATHY
     Dosage: SCHEDULE C AND TITRATING
     Route: 048
     Dates: start: 20170519
  6. NORTHERA [Suspect]
     Active Substance: DROXIDOPA
     Dosage: SCHEDULE B AND TITRATING
     Route: 048
     Dates: start: 20170519

REACTIONS (10)
  - Blindness transient [Recovering/Resolving]
  - Hypoaesthesia [Recovered/Resolved]
  - Fall [Unknown]
  - Dysstasia [Unknown]
  - Blood pressure immeasurable [Unknown]
  - Peripheral motor neuropathy [Recovered/Resolved]
  - Limb injury [Unknown]
  - Pain in extremity [Unknown]
  - Paraesthesia [Unknown]
  - Hypotension [Not Recovered/Not Resolved]

NARRATIVE: CASE EVENT DATE: 20170523
